FAERS Safety Report 4761352-6 (Version None)
Quarter: 2005Q3

REPORT INFORMATION
  Report Type: 
  Country: None (occurrence: None)
  Receive Date: 20050901
  Receipt Date: 20050415
  Transmission Date: 20060218
  Serious: Yes (Hospitalization)
  Sender: FDA-Public Use
  Company Number: 2005-FR-00262

PATIENT
  Age: 82 Year
  Sex: Female

DRUGS (1)
  1. ASPIRIN [Suspect]
     Dosage: 75 MG, ORAL
     Route: 048
     Dates: end: 20050215

REACTIONS (1)
  - GASTRIC ULCER HAEMORRHAGE [None]
